FAERS Safety Report 8157068 (Version 3)
Quarter: 2012Q4

REPORT INFORMATION
  Report Type: 
  Country: US (occurrence: US)
  Receive Date: 20110926
  Receipt Date: 20121126
  Transmission Date: 20130627
  Serious: Yes (Other)
  Sender: FDA-Public Use
  Company Number: US-ASTRAZENECA-2009SE24008

PATIENT
  Age: 73 Year
  Sex: Female
  Weight: 70.3 kg

DRUGS (22)
  1. ATACAND [Suspect]
     Route: 048
     Dates: start: 2008, end: 20091026
  2. SEROQUEL [Suspect]
     Indication: SLEEP DISORDER
     Route: 048
     Dates: start: 201012
  3. SEROQUEL [Suspect]
     Indication: SLEEP DISORDER
     Route: 048
  4. SEROQUEL [Suspect]
     Indication: SLEEP DISORDER
     Route: 048
  5. UNSPECIFIED INGREDIENT MEDICATIONS [Suspect]
     Route: 065
  6. CELEXA [Concomitant]
  7. CLONOPIN [Concomitant]
     Indication: SLEEP DISORDER
  8. SINEMET [Concomitant]
     Indication: PARKINSON^S DISEASE
  9. CALCIUM [Concomitant]
     Dosage: ONCE A DAY
  10. CARBIDOPA [Concomitant]
  11. LEVODOPA [Concomitant]
     Dosage: 100 MG 18 PILLS
  12. BOMALIN [Concomitant]
  13. MAGNESIUM [Concomitant]
  14. POTASSIUM [Concomitant]
  15. VITAMIN D [Concomitant]
  16. CHOLEN [Concomitant]
  17. LECITHIN [Concomitant]
  18. CALCIUM CARBONATE [Concomitant]
  19. MAGNESIUM MALEATE [Concomitant]
  20. BIOTIN [Concomitant]
  21. PANCREASE [Concomitant]
  22. VITAMIN C ESTER [Concomitant]

REACTIONS (14)
  - Wrist fracture [Unknown]
  - Dyspnoea [Unknown]
  - Feeling hot [Unknown]
  - Hypotension [Unknown]
  - Muscle spasms [Unknown]
  - Tremor [Recovered/Resolved]
  - Urine uric acid [Unknown]
  - Malaise [Unknown]
  - Musculoskeletal stiffness [Unknown]
  - Fall [Unknown]
  - Myalgia [Unknown]
  - Drug dependence [Unknown]
  - Drug ineffective [Unknown]
  - Off label use [Unknown]
